FAERS Safety Report 8190336-3 (Version None)
Quarter: 2012Q1

REPORT INFORMATION
  Report Type: 
  Country: None (occurrence: None)
  Receive Date: 20120305
  Receipt Date: 20120227
  Transmission Date: 20120608
  Serious: Yes (Other)
  Sender: FDA-Public Use
  Company Number: 2012MA002645

PATIENT
  Age: 43 Year
  Sex: Female

DRUGS (7)
  1. WARFARIN SODIUM [Suspect]
     Dosage: 8 MG;QD;
  2. METFORMIN HYDROCHLORIDE [Concomitant]
  3. GLIPIZIDE [Concomitant]
  4. HYDRALAZINE HCL [Concomitant]
  5. BENDROFLUAZIDE [Concomitant]
  6. MICONAZOLE NITRATE [Suspect]
     Indication: PRODUCT USED FOR UNKNOWN INDICATION
     Dosage: 15 G;QD;PO
     Route: 048
  7. ALPRENOLOL [Concomitant]

REACTIONS (3)
  - DRUG INTERACTION [None]
  - HAEMATURIA [None]
  - INTERNATIONAL NORMALISED RATIO INCREASED [None]
